FAERS Safety Report 8622036-7 (Version None)
Quarter: 2012Q3

REPORT INFORMATION
  Report Type: 
  Country: None (occurrence: None)
  Receive Date: 20120823
  Receipt Date: 20120823
  Transmission Date: 20120928
  Serious: No
  Sender: FDA-Public Use
  Company Number: None

PATIENT
  Age: 64 Year
  Sex: Male
  Weight: 86.1834 kg

DRUGS (2)
  1. LEVAQUIN [Suspect]
     Indication: SINUSITIS BACTERIAL
     Dosage: ONE QD
     Dates: start: 20120107, end: 20120711
  2. LEVAQUIN [Suspect]
     Indication: ACUTE SINUSITIS
     Dosage: ONE QD
     Dates: start: 20120107, end: 20120711

REACTIONS (2)
  - MUSCLE TWITCHING [None]
  - TREMOR [None]
